FAERS Safety Report 9883594 (Version 2)
Quarter: 2014Q2

REPORT INFORMATION
  Report Type: Report from Study
  Country: AR (occurrence: AR)
  Receive Date: 20140210
  Receipt Date: 20140520
  Transmission Date: 20141212
  Serious: Yes (Death)
  Sender: FDA-Public Use
  Company Number: AR-BRISTOL-MYERS SQUIBB COMPANY-20167797

PATIENT
  Age: 46 Year
  Sex: Female

DRUGS (1)
  1. YERVOY [Suspect]
     Indication: MALIGNANT MELANOMA
     Dosage: 1DF: 5 UNITS OF 50MG?SECOND DOSE:01NOV13?3 DOSES
     Route: 042
     Dates: start: 20130930, end: 20131204

REACTIONS (1)
  - Malignant neoplasm progression [Fatal]
